FAERS Safety Report 21345655 (Version 1)
Quarter: 2022Q3

REPORT INFORMATION
  Report Type: Spontaneous
  Country: FR (occurrence: FR)
  Receive Date: 20220916
  Receipt Date: 20220916
  Transmission Date: 20221027
  Serious: Yes (Hospitalization, Other)
  Sender: FDA-Public Use
  Company Number: FR-NOVARTISPH-NVSC2020FR356075

PATIENT
  Age: 76 Year
  Sex: Male

DRUGS (6)
  1. RIFAMPIN [Interacting]
     Active Substance: RIFAMPIN
     Indication: Pneumonia legionella
     Dosage: 900 MG, BID (1800 MILLIGRAM DAILY)
     Route: 065
  2. RIFAMPIN [Interacting]
     Active Substance: RIFAMPIN
     Dosage: 900 MG, BID (1800 MILLIGRAM DAILY)
     Route: 065
  3. CYCLOPHOSPHAMIDE [Suspect]
     Active Substance: CYCLOPHOSPHAMIDE
     Indication: Immunosuppressant drug therapy
     Dosage: UNK
     Route: 065
  4. AZITHROMYCIN [Suspect]
     Active Substance: AZITHROMYCIN
     Indication: Pneumonia legionella
     Dosage: 500 MG, QD, 1 DOSE DAILY
     Route: 065
  5. AZATHIOPRINE [Suspect]
     Active Substance: AZATHIOPRINE
     Indication: Immunosuppressant drug therapy
     Dosage: UNK
     Route: 065
  6. SPIRAMYCIN [Interacting]
     Active Substance: SPIRAMYCIN
     Indication: Pneumonia legionella
     Dosage: 9 MU DAILY; 3 MILLIONS OF INTERNATIONAL UNITS THRICE A DAY
     Route: 065

REACTIONS (7)
  - Drug interaction [Unknown]
  - Pneumonia legionella [Not Recovered/Not Resolved]
  - Pyrexia [Unknown]
  - Respiratory symptom [Unknown]
  - Lung consolidation [Unknown]
  - Therapeutic response decreased [Unknown]
  - Product use in unapproved indication [Unknown]
